FAERS Safety Report 17036613 (Version 2)
Quarter: 2019Q4

REPORT INFORMATION
  Report Type: Spontaneous
  Country: US (occurrence: US)
  Receive Date: 20191115
  Receipt Date: 20191211
  Transmission Date: 20200122
  Serious: Yes (Other)
  Sender: FDA-Public Use
  Company Number: US-AMERICAN REGENT INC-2019002538

PATIENT
  Age: 72 Year
  Sex: Male

DRUGS (2)
  1. VENOFER [Suspect]
     Active Substance: IRON SUCROSE
     Dosage: 200 MILLIGRAM, SINGLE
     Dates: start: 20191010, end: 20191010
  2. VENOFER [Suspect]
     Active Substance: IRON SUCROSE
     Indication: IRON DEFICIENCY ANAEMIA
     Dosage: 200 MILLIGRAM, SINGLE
     Dates: start: 20191017, end: 20191017

REACTIONS (4)
  - Loss of consciousness [Recovered/Resolved]
  - Hypotension [Recovered/Resolved]
  - Bradycardia [Recovered/Resolved]
  - Malaise [Recovered/Resolved]

NARRATIVE: CASE EVENT DATE: 20191017
